FAERS Safety Report 6958409-8 (Version None)
Quarter: 2010Q3

REPORT INFORMATION
  Report Type: 
  Country: None (occurrence: None)
  Receive Date: 20100830
  Receipt Date: 20100830
  Transmission Date: 20110219
  Serious: Yes (Hospitalization)
  Sender: FDA-Public Use
  Company Number: None

PATIENT
  Sex: Male
  Weight: 92.8 kg

DRUGS (1)
  1. CYTARABINE [Suspect]
     Dosage: 37.98 G
     Dates: end: 20100806

REACTIONS (2)
  - NEUTROPENIA [None]
  - PYREXIA [None]
